FAERS Safety Report 21539703 (Version 1)
Quarter: 2022Q4

REPORT INFORMATION
  Report Type: Spontaneous
  Country: SA (occurrence: SA)
  Receive Date: 20221102
  Receipt Date: 20221102
  Transmission Date: 20230113
  Serious: Yes (Other)
  Sender: FDA-Public Use
  Company Number: SA-AMGEN-SAUSP2022183964

PATIENT
  Age: 52 Year
  Sex: Male

DRUGS (10)
  1. REPATHA [Suspect]
     Active Substance: EVOLOCUMAB
     Indication: Type IIa hyperlipidaemia
     Dosage: 140 MILLIGRAM, Q2WK
     Route: 058
     Dates: start: 20220104
  2. ASPIRIN [Concomitant]
     Active Substance: ASPIRIN
     Dosage: 81 MILLIGRAM, QD
     Dates: start: 20220104
  3. TICAGRELOR [Concomitant]
     Active Substance: TICAGRELOR
     Dosage: 90 MILLIGRAM, BID
     Dates: start: 20220104
  4. BISOPROLOL [Concomitant]
     Active Substance: BISOPROLOL
     Dosage: 5 MILLIGRAM, QD
     Dates: start: 20220104, end: 20220111
  5. EMPAGLIFLOZIN [Concomitant]
     Active Substance: EMPAGLIFLOZIN
     Dosage: 10 MILLIGRAM, QD
     Dates: start: 20220104
  6. ISOSORBIDE DINITRATE [Concomitant]
     Active Substance: ISOSORBIDE DINITRATE
     Dosage: 5 MILLIGRAM, BID
     Dates: start: 20220104
  7. ESOMEPRAZOLE [Concomitant]
     Active Substance: ESOMEPRAZOLE
     Dosage: 20 MILLIGRAM, QD
     Dates: start: 20220104
  8. TRIMETAZIDINE [Concomitant]
     Active Substance: TRIMETAZIDINE
     Dosage: 35 MILLIGRAM, BID
     Dates: start: 20220104, end: 20220111
  9. ROSUVASTATIN [Concomitant]
     Active Substance: ROSUVASTATIN
     Dosage: 20 MILLIGRAM, QD
     Dates: start: 20220104
  10. EZETIMIBE [Concomitant]
     Active Substance: EZETIMIBE
     Dosage: 10 MILLIGRAM, QD
     Dates: start: 20220104

REACTIONS (1)
  - Myocardial infarction [Recovered/Resolved]

NARRATIVE: CASE EVENT DATE: 20221005
